FAERS Safety Report 6917533-6 (Version None)
Quarter: 2010Q3

REPORT INFORMATION
  Report Type: 
  Country: None (occurrence: None)
  Receive Date: 20100810
  Receipt Date: 20100726
  Transmission Date: 20110219
  Serious: Yes (Other)
  Sender: FDA-Public Use
  Company Number: US-JNJFOC-20100203124

PATIENT
  Sex: Female
  Weight: 98.88 kg

DRUGS (4)
  1. EXTRA STRENGTH TYLENOL [Suspect]
     Route: 048
  2. EXTRA STRENGTH TYLENOL [Suspect]
     Indication: ABDOMINAL PAIN UPPER
     Route: 048
  3. SYNTHROID [Concomitant]
     Indication: HYPOTHYROIDISM
     Route: 065
  4. VIVELLE [Concomitant]
     Indication: BLOOD OESTROGEN
     Route: 062

REACTIONS (4)
  - ANAEMIA [None]
  - COLITIS [None]
  - PRODUCT QUALITY ISSUE [None]
  - VOMITING [None]
